FAERS Safety Report 7928086-8 (Version None)
Quarter: 2011Q4

REPORT INFORMATION
  Report Type: 
  Country: None (occurrence: None)
  Receive Date: 20111118
  Receipt Date: 20111108
  Transmission Date: 20120403
  Serious: Yes (Other)
  Sender: FDA-Public Use
  Company Number: JP-GLAXOSMITHKLINE-B0754239A

PATIENT
  Sex: Male
  Weight: 56 kg

DRUGS (15)
  1. SULFAMETHOXAZOLE AND TRIMETHOPRIM [Concomitant]
     Indication: INFECTION PROPHYLAXIS
     Route: 048
     Dates: start: 20100917
  2. OXYCONTIN [Concomitant]
     Indication: ANALGESIC THERAPY
     Route: 048
     Dates: start: 20100907
  3. CALCIUM CARBONATE [Concomitant]
     Route: 048
     Dates: start: 20100910
  4. NOVORAPID [Concomitant]
     Route: 058
     Dates: start: 20091214
  5. RAMELTEON [Concomitant]
     Route: 042
     Dates: start: 20100906, end: 20100910
  6. ARRANON [Suspect]
     Indication: T-CELL TYPE ACUTE LEUKAEMIA
     Dosage: 1500MGM2 TWICE PER DAY
     Route: 042
     Dates: start: 20100906, end: 20100910
  7. FIRSTCIN [Suspect]
     Indication: PYREXIA
     Route: 042
     Dates: start: 20100924, end: 20100929
  8. AMLODIPINE [Concomitant]
     Route: 048
     Dates: start: 20100910
  9. ALFAROL [Concomitant]
     Indication: OSTEOPOROSIS PROPHYLAXIS
     Route: 048
     Dates: start: 20100910
  10. ZOVIRAX [Concomitant]
     Indication: INFECTION PROPHYLAXIS
     Route: 048
     Dates: start: 20100917
  11. PREDNISOLONE [Concomitant]
     Indication: T-CELL TYPE ACUTE LEUKAEMIA
     Route: 048
     Dates: start: 20100902, end: 20100908
  12. UNSPECIFIED MEDICATION [Concomitant]
     Indication: INFECTION PROPHYLAXIS
     Dates: start: 20100903, end: 20100906
  13. LANSOPRAZOLE [Concomitant]
     Indication: PROPHYLAXIS AGAINST GASTROINTESTINAL ULCER
     Route: 048
     Dates: start: 20100904
  14. ACETAMINOPHEN [Concomitant]
     Indication: ANALGESIC THERAPY
     Route: 048
     Dates: start: 20100910
  15. ARRANON [Suspect]
     Dosage: 1500MGM2 TWICE PER DAY
     Route: 042
     Dates: start: 20101008, end: 20101012

REACTIONS (4)
  - NEUROPATHY PERIPHERAL [None]
  - BLOOD CREATINE PHOSPHOKINASE INCREASED [None]
  - WHITE BLOOD CELL COUNT DECREASED [None]
  - SOMNOLENCE [None]
